FAERS Safety Report 9521004 (Version 2)
Quarter: 2013Q3

REPORT INFORMATION
  Report Type: Spontaneous
  Country: ES (occurrence: ES)
  Receive Date: 20130913
  Receipt Date: 20130925
  Transmission Date: 20140515
  Serious: Yes (Other)
  Sender: FDA-Public Use
  Company Number: ES-009507513-1309ESP003125

PATIENT
  Sex: Male

DRUGS (4)
  1. REXER [Suspect]
     Indication: ANTIDEPRESSANT THERAPY
     Dosage: UNK
     Route: 048
     Dates: start: 2005, end: 201303
  2. REXER [Suspect]
     Indication: ANTIDEPRESSANT THERAPY
     Dosage: 7.5 MG, UNK
     Route: 048
     Dates: start: 201303, end: 2013
  3. REXER [Suspect]
     Dosage: 4.5 MG, UNK
     Route: 048
     Dates: start: 201304, end: 2013
  4. REXER [Suspect]
     Dosage: UNKWAS TAKING THE THIRD PART OF THE TOTAL DOSE. REDUCED THE DOSE 0.3MG
     Dates: start: 201308

REACTIONS (26)
  - Drug dependence [Not Recovered/Not Resolved]
  - Suicidal ideation [Not Recovered/Not Resolved]
  - Anxiety [Not Recovered/Not Resolved]
  - Fear [Not Recovered/Not Resolved]
  - Acne [Not Recovered/Not Resolved]
  - Rash [Not Recovered/Not Resolved]
  - Pollakiuria [Not Recovered/Not Resolved]
  - Micturition frequency decreased [Not Recovered/Not Resolved]
  - Mood altered [Not Recovered/Not Resolved]
  - Personality change [Not Recovered/Not Resolved]
  - Nervousness [Not Recovered/Not Resolved]
  - Tension [Not Recovered/Not Resolved]
  - Hypoaesthesia [Not Recovered/Not Resolved]
  - Dyskinesia [Not Recovered/Not Resolved]
  - Pruritus [Not Recovered/Not Resolved]
  - Feeling abnormal [Not Recovered/Not Resolved]
  - Insomnia [Not Recovered/Not Resolved]
  - Influenza [Not Recovered/Not Resolved]
  - Headache [Not Recovered/Not Resolved]
  - Diarrhoea [Not Recovered/Not Resolved]
  - Abdominal pain upper [Not Recovered/Not Resolved]
  - Constipation [Not Recovered/Not Resolved]
  - Adverse event [Unknown]
  - Feeling abnormal [Unknown]
  - Incorrect dose administered [Unknown]
  - Erythema [Not Recovered/Not Resolved]
